FAERS Safety Report 5384070-2 (Version None)
Quarter: 2007Q3

REPORT INFORMATION
  Report Type: 
  Country: None (occurrence: None)
  Receive Date: 20070711
  Receipt Date: 20070705
  Transmission Date: 20080115
  Serious: Yes (Death, Hospitalization)
  Sender: FDA-Public Use
  Company Number: ES-BAYER-200713506GDS

PATIENT
  Age: 61 Year
  Sex: Male
  Weight: 85 kg

DRUGS (11)
  1. SORAFENIB [Suspect]
     Indication: RENAL CELL CARCINOMA STAGE UNSPECIFIED
     Dosage: TOTAL DAILY DOSE: 800 MG
     Route: 048
     Dates: start: 20070501, end: 20070523
  2. GEMCITABINE HCL [Suspect]
     Indication: RENAL CELL CARCINOMA STAGE UNSPECIFIED
     Route: 042
     Dates: start: 20070430, end: 20070523
  3. GEMCITABINE HCL [Suspect]
     Route: 042
     Dates: start: 20070620
  4. CAPECITABINE [Suspect]
     Indication: RENAL CELL CARCINOMA STAGE UNSPECIFIED
     Route: 048
     Dates: start: 20070430, end: 20070523
  5. ZOMETA [Concomitant]
     Indication: METASTASES TO BONE
     Route: 042
     Dates: start: 20070523
  6. PARACETAMOL [Concomitant]
     Indication: PAIN
     Route: 048
     Dates: start: 20070523
  7. RESINCALCIO [Concomitant]
     Indication: HYPERKALAEMIA
     Route: 048
     Dates: start: 20070523
  8. GEMFIBROZILO [Concomitant]
     Indication: HYPERCHOLESTEROLAEMIA
     Route: 048
     Dates: start: 20070613, end: 20070618
  9. HIDROALTESONA [Concomitant]
     Indication: RENAL FAILURE
     Route: 048
     Dates: start: 20050329
  10. FLUOXETINA [Concomitant]
     Indication: DEPRESSION
     Route: 048
     Dates: start: 20060101
  11. TRANKIMAZIN [Concomitant]
     Indication: ANXIETY
     Route: 048
     Dates: start: 20060101

REACTIONS (2)
  - DYSPNOEA [None]
  - RESPIRATORY FAILURE [None]
